FAERS Safety Report 23940044 (Version 1)
Quarter: 2024Q2

REPORT INFORMATION
  Report Type: Report from Study
  Country: US (occurrence: None)
  Receive Date: 20240605
  Receipt Date: 20240605
  Transmission Date: 20240715
  Serious: Yes (Death)
  Sender: FDA-Public Use
  Company Number: 2024A127764

PATIENT
  Sex: Female

DRUGS (2)
  1. LYNPARZA [Suspect]
     Active Substance: OLAPARIB
     Dosage: TAKE 1 TABLET BY MOUTH TWICE A DAY SWALLOW TABLET WHOLE
     Route: 048
  2. LYNPARZA [Suspect]
     Active Substance: OLAPARIB
     Dosage: TAKE 2 TABLETS BY MOUTH EVERY 12 HOURS WHOLE
     Route: 048

REACTIONS (1)
  - Death [Fatal]
